FAERS Safety Report 20050903 (Version 1)
Quarter: 2021Q4

REPORT INFORMATION
  Report Type: Spontaneous
  Country: US (occurrence: US)
  Receive Date: 20211110
  Receipt Date: 20211110
  Transmission Date: 20220303
  Serious: No
  Sender: FDA-Public Use
  Company Number: US-JNJFOC-20211059097

PATIENT
  Age: 85 Year
  Sex: Male

DRUGS (6)
  1. ERLEADA [Suspect]
     Active Substance: APALUTAMIDE
     Indication: Prostate cancer metastatic
     Route: 048
     Dates: start: 2019
  2. OLAPARIB [Concomitant]
     Active Substance: OLAPARIB
     Indication: Prostate cancer metastatic
  3. DOCETAXEL [Concomitant]
     Active Substance: DOCETAXEL
     Indication: Prostate cancer metastatic
     Dosage: 2 CYCLES, JULY-AUG. 2021
     Dates: start: 2021
  4. LEUPROLIDE ACETATE [Concomitant]
     Active Substance: LEUPROLIDE ACETATE
     Indication: Prostate cancer metastatic
  5. LEUPROLIDE ACETATE [Concomitant]
     Active Substance: LEUPROLIDE ACETATE
     Indication: Prostate cancer metastatic
  6. OLAPARIB [Concomitant]
     Active Substance: OLAPARIB
     Indication: Prostate cancer metastatic
     Dates: start: 2020

REACTIONS (2)
  - Prostatic specific antigen increased [Unknown]
  - Asthenia [Unknown]

NARRATIVE: CASE EVENT DATE: 20210826
